FAERS Safety Report 4472524-2 (Version None)
Quarter: 2004Q4

REPORT INFORMATION
  Report Type: 
  Country: None (occurrence: None)
  Receive Date: 20041007
  Receipt Date: 20040924
  Transmission Date: 20050328
  Serious: Yes (Hospitalization, Other)
  Sender: FDA-Public Use
  Company Number: SUSI-2004-00560

PATIENT
  Age: 70 Year
  Sex: Female
  Weight: 50.7 kg

DRUGS (5)
  1. AGRYLIN [Suspect]
     Indication: THROMBOCYTHAEMIA
     Dosage: 0.5 MG, 2X/DAY:BID
     Dates: start: 19990101, end: 20040501
  2. HYDREA [Concomitant]
  3. ASPIRIN [Concomitant]
  4. ADVIL [Concomitant]
  5. DILTIAZEM HYDROCHLORIDE [Concomitant]

REACTIONS (7)
  - CARPAL TUNNEL SYNDROME [None]
  - CHEST PAIN [None]
  - DYSPEPSIA [None]
  - MYELOFIBROSIS [None]
  - RENAL FAILURE [None]
  - SHIFT TO THE LEFT [None]
  - THROMBOCYTHAEMIA [None]
